FAERS Safety Report 5145135-3 (Version None)
Quarter: 2006Q4

REPORT INFORMATION
  Report Type: 
  Country: None (occurrence: None)
  Receive Date: 20061107
  Receipt Date: 20060302
  Transmission Date: 20070319
  Serious: Yes (Hospitalization)
  Sender: FDA-Public Use
  Company Number: US-ELI_LILLY_AND_COMPANY-US200603002418

PATIENT
  Sex: Female
  Weight: 77.097 kg

DRUGS (4)
  1. PROZAC [Concomitant]
  2. MICRONASE [Concomitant]
  3. NPH INSULIN [Concomitant]
     Dates: start: 19960101, end: 19980101
  4. ZYPREXA [Suspect]
     Indication: DEPRESSION
     Dosage: 10 MG, UNK
     Dates: start: 19980101, end: 19990601

REACTIONS (3)
  - CARDIAC DISORDER [None]
  - DIABETES MELLITUS [None]
  - METABOLIC DISORDER [None]
